FAERS Safety Report 9540519 (Version 4)
Quarter: 2013Q4

REPORT INFORMATION
  Report Type: Report from Study
  Country: US (occurrence: US)
  Receive Date: 20130920
  Receipt Date: 20131216
  Transmission Date: 20140711
  Serious: Yes (Hospitalization)
  Sender: FDA-Public Use
  Company Number: US-PFIZER INC-2013265774

PATIENT
  Age: 51 Year
  Sex: Female
  Weight: 87.1 kg

DRUGS (20)
  1. CYTARABINE [Suspect]
     Indication: ACUTE MYELOID LEUKAEMIA
     Dosage: 1950 MG, CONSOLIDATION: 3 HOUR INFUSION Q12HRS ON DAYS 1, 3 AND 5
     Route: 042
     Dates: start: 20130830, end: 20130903
  2. PF-04449913 [Suspect]
     Indication: ACUTE MYELOID LEUKAEMIA
     Dosage: 100 MG, ONCE DAILY CONTINUOUS
     Route: 048
     Dates: start: 20130709, end: 20130912
  3. DAUNORUBICIN [Suspect]
     Indication: ACUTE MYELOID LEUKAEMIA
     Dosage: 115 MG, CYCLIC ONCE DAILY ON DAYS 1-3
     Route: 040
     Dates: start: 20130701, end: 20130703
  4. LORAZEPAM [Concomitant]
     Indication: ANXIETY
     Dosage: UNK
     Route: 048
     Dates: start: 20130626
  5. LORAZEPAM [Concomitant]
     Indication: NAUSEA
  6. LORAZEPAM [Concomitant]
     Indication: VOMITING
  7. ACYCLOVIR [Concomitant]
     Indication: PROPHYLAXIS
     Dosage: UNK
     Route: 048
     Dates: start: 20130626
  8. OXYCODONE [Concomitant]
     Indication: PAIN
     Dosage: UNK
     Route: 048
     Dates: start: 20130625
  9. OLANZAPINE [Concomitant]
     Indication: ANXIETY
     Dosage: UNK
     Route: 048
     Dates: start: 20130702
  10. OLANZAPINE [Concomitant]
     Indication: DEPRESSION
  11. OLANZAPINE [Concomitant]
     Indication: INSOMNIA
  12. METOPROLOL [Concomitant]
     Indication: CARDIOVASCULAR DISORDER
     Dosage: UNK
     Route: 048
     Dates: start: 20130721
  13. VALACICLOVIR [Concomitant]
     Indication: INFECTION PROPHYLAXIS
     Dosage: UNK
     Route: 048
     Dates: start: 20130830, end: 20130901
  14. DULOXETINE [Concomitant]
     Indication: DEPRESSION
     Dosage: UNK
     Route: 048
     Dates: start: 20130830
  15. DULOXETINE [Concomitant]
     Indication: PARAESTHESIA
  16. FAMOTIDINE [Concomitant]
     Indication: PROPHYLAXIS AGAINST GASTROINTESTINAL ULCER
     Dosage: UNK
     Route: 048
     Dates: start: 20130802
  17. LACTULOSE [Concomitant]
     Indication: CONSTIPATION
     Dosage: UNK
     Route: 048
     Dates: start: 20130901, end: 20130901
  18. ZOLPIDEM [Concomitant]
     Indication: INSOMNIA
     Dosage: UNK
     Route: 048
     Dates: start: 20130630, end: 20130902
  19. DEXAMETHASONE [Concomitant]
     Indication: PREMEDICATION
     Dosage: UNK
     Dates: start: 20130601, end: 20130903
  20. PREDNISOLONE ACETATE [Concomitant]
     Indication: OCULAR TOXICITY
     Dosage: UNK
     Route: 047
     Dates: start: 20130802, end: 20130904

REACTIONS (1)
  - Appendicitis [Recovered/Resolved]
